FAERS Safety Report 19655983 (Version 1)
Quarter: 2021Q3

REPORT INFORMATION
  Report Type: Spontaneous
  Country: SE (occurrence: SE)
  Receive Date: 20210804
  Receipt Date: 20210804
  Transmission Date: 20211014
  Serious: Yes (Other)
  Sender: FDA-Public Use
  Company Number: SE-MYLANLABS-2021M1046982

PATIENT
  Age: 70 Year
  Sex: Male

DRUGS (15)
  1. VALACICLOVIR [Suspect]
     Active Substance: VALACYCLOVIR HYDROCHLORIDE
     Indication: HERPES ZOSTER
     Dosage: 3000 MILLIGRAM, QD (500 MG 2+2+2)
     Route: 048
     Dates: start: 20200828, end: 20200831
  2. BETNOVAT MED CHINOFORM [Concomitant]
     Dosage: VB
  3. OMEPRAZOL                          /00661201/ [Concomitant]
     Active Substance: OMEPRAZOLE
     Dosage: UNK
  4. METOPROLOL ORION [Concomitant]
     Active Substance: METOPROLOL
     Dosage: UNK
  5. GABAPENTIN 1A FARMA [Concomitant]
     Active Substance: GABAPENTIN
     Dosage: UNK
  6. ALVEDON [Concomitant]
     Active Substance: ACETAMINOPHEN
     Dosage: VB
  7. OVIXAN [Concomitant]
     Dosage: UNK
  8. PRADAXA [Concomitant]
     Active Substance: DABIGATRAN ETEXILATE MESYLATE
     Dosage: UNK
  9. CITODON                            /00116401/ [Concomitant]
     Active Substance: ACETAMINOPHEN\CODEINE PHOSPHATE
     Dosage: VB
  10. ACETYLCYSTEIN MEDA [Concomitant]
     Dosage: VB
  11. BLOXAZOC [Concomitant]
     Active Substance: METOPROLOL SUCCINATE
     Dosage: UNK
  12. AMLODIPINE [Concomitant]
     Active Substance: AMLODIPINE BESYLATE
     Dosage: UNK
  13. LOCOID [Concomitant]
     Active Substance: HYDROCORTISONE BUTYRATE
     Dosage: VB
  14. CETIMAX [Concomitant]
     Dosage: VB
  15. PROPYLESS [Concomitant]
     Dosage: UNK

REACTIONS (1)
  - Eosinophilia [Recovered/Resolved]

NARRATIVE: CASE EVENT DATE: 20200902
